FAERS Safety Report 7434608-6 (Version None)
Quarter: 2011Q2

REPORT INFORMATION
  Report Type: 
  Country: None (occurrence: None)
  Receive Date: 20110425
  Receipt Date: 20110413
  Transmission Date: 20111010
  Serious: Yes (Hospitalization)
  Sender: FDA-Public Use
  Company Number: US-BAYER-2011-031915

PATIENT
  Age: 62 Year
  Sex: Male

DRUGS (14)
  1. ASPIRIN [Concomitant]
     Dosage: DAILY DOSE 81 MG
     Dates: start: 20090909
  2. ADVAIR HFA [Concomitant]
     Dosage: UNK
     Dates: start: 20060101
  3. LEVOTHYROXINE SODIUM [Concomitant]
     Dosage: DAILY DOSE 25 MCG/24HR
     Dates: start: 20040101
  4. METOPROLOL [Concomitant]
     Dosage: DAILY DOSE 25 MG
     Dates: start: 20030901
  5. ALBUTEROL [Concomitant]
     Dosage: UNK
     Route: 053
     Dates: start: 20060101
  6. ORPHENADRINE CITRATE [Concomitant]
     Dosage: DAILY DOSE 100 MG
     Dates: start: 20070101
  7. TRAMADOL HCL [Concomitant]
     Dosage: DAILY DOSE 50 MG
     Dates: start: 20070101
  8. NEXAVAR [Suspect]
     Indication: HEPATIC NEOPLASM MALIGNANT
     Dosage: DAILY DOSE 800 MG
     Route: 048
     Dates: start: 20091120
  9. CHANTIX [Concomitant]
     Dosage: DAILY DOSE .5 MG
     Dates: start: 20090101
  10. CYCLOBENZAPRINE [Concomitant]
     Dosage: DAILY DOSE 10 MG
     Dates: start: 20090101
  11. EYE DROPS [Concomitant]
     Dosage: 0.2
     Dates: start: 20090801
  12. FUROSEMIDE [Concomitant]
     Dosage: DAILY DOSE 40 MG
     Dates: start: 20030901
  13. SKELAXIN [Concomitant]
     Dosage: DAILY DOSE 800 MG
     Dates: start: 20090101
  14. ACETAMINOPHEN [Concomitant]
     Dosage: DAILY DOSE 325 MG
     Dates: start: 20070101

REACTIONS (1)
  - SKIN ULCER [None]
